FAERS Safety Report 23665860 (Version 1)
Quarter: 2024Q1

REPORT INFORMATION
  Report Type: Spontaneous
  Country: CN (occurrence: CN)
  Receive Date: 20240323
  Receipt Date: 20240323
  Transmission Date: 20240410
  Serious: Yes (Life-Threatening, Hospitalization, Other)
  Sender: FDA-Public Use
  Company Number: None

PATIENT
  Age: 70 Year
  Sex: Female

DRUGS (5)
  1. GLYCERIN\LECITHIN\MEDIUM-CHAIN TRIGLYCERIDES\SOYBEAN OIL [Suspect]
     Active Substance: GLYCERIN\LECITHIN\MEDIUM-CHAIN TRIGLYCERIDES\SOYBEAN OIL
     Indication: Nutritional supplementation
     Dosage: (DOSAGE FORM: INJECTION) 250 ML ONCE DAILY
     Route: 041
     Dates: start: 20240228, end: 20240228
  2. GLYCERIN\LECITHIN\MEDIUM-CHAIN TRIGLYCERIDES\SOYBEAN OIL [Suspect]
     Active Substance: GLYCERIN\LECITHIN\MEDIUM-CHAIN TRIGLYCERIDES\SOYBEAN OIL
     Indication: Symptomatic treatment
  3. OXYGEN [Suspect]
     Active Substance: OXYGEN
     Indication: Hypersensitivity
     Dosage: 2-3 L/MIN
     Dates: start: 20240228
  4. OXYGEN [Suspect]
     Active Substance: OXYGEN
     Indication: Chest discomfort
  5. DIPHENHYDRAMINE [Suspect]
     Active Substance: DIPHENHYDRAMINE
     Indication: Antiallergic therapy
     Dosage: 20 MG AT AN UNSPECIFIED FREQUENCY
     Route: 030
     Dates: start: 20240228

REACTIONS (4)
  - Altered state of consciousness [Recovered/Resolved]
  - Asthenia [Unknown]
  - Hypersensitivity [Unknown]
  - Chest discomfort [Recovered/Resolved]

NARRATIVE: CASE EVENT DATE: 20240228
